FAERS Safety Report 16963243 (Version 1)
Quarter: 2019Q4

REPORT INFORMATION
  Report Type: Spontaneous
  Country: AR (occurrence: AR)
  Receive Date: 20191025
  Receipt Date: 20191025
  Transmission Date: 20200122
  Serious: Yes (Hospitalization)
  Sender: FDA-Public Use
  Company Number: NVSC2019AR015658

PATIENT
  Age: 5 Month
  Sex: Female

DRUGS (7)
  1. BETAMETHASONE VALERATE. [Suspect]
     Active Substance: BETAMETHASONE VALERATE
     Indication: ULCERATED HAEMANGIOMA
     Dosage: THREE 50 MG TUBES PER WEEK)
     Route: 065
  2. PROPRANOLOL [Concomitant]
     Active Substance: PROPRANOLOL HYDROCHLORIDE
     Indication: PRODUCT USED FOR UNKNOWN INDICATION
     Dosage: 1.5 MG/KG, QD
     Route: 065
  3. CLINDAMYCIN. [Concomitant]
     Active Substance: CLINDAMYCIN
     Indication: PRODUCT USED FOR UNKNOWN INDICATION
     Dosage: 30 MG/KG, QD
     Route: 065
  4. HIDROCORTISON [Concomitant]
     Active Substance: HYDROCORTISONE
     Indication: SECONDARY ADRENOCORTICAL INSUFFICIENCY
     Dosage: 15 MG/M2
     Route: 065
  5. ACETAMINOPHEN. [Concomitant]
     Active Substance: ACETAMINOPHEN
     Indication: PRODUCT USED FOR UNKNOWN INDICATION
     Dosage: 10 MG/KG, Q8H
     Route: 065
  6. FUSIDIC ACID [Suspect]
     Active Substance: FUSIDIC ACID
     Indication: ULCERATED HAEMANGIOMA
     Dosage: UNK %
     Route: 065
  7. CHLORAMPHENICOL [Concomitant]
     Active Substance: CHLORAMPHENICOL
     Indication: ULCERATED HAEMANGIOMA
     Dosage: UNK
     Route: 065

REACTIONS (2)
  - Cushing^s syndrome [Unknown]
  - Product use in unapproved indication [Unknown]
